FAERS Safety Report 7431836-0 (Version None)
Quarter: 2011Q2

REPORT INFORMATION
  Report Type: 
  Country: None (occurrence: None)
  Receive Date: 20110422
  Receipt Date: 20110412
  Transmission Date: 20111010
  Serious: Yes (Other)
  Sender: FDA-Public Use
  Company Number: US-ELI_LILLY_AND_COMPANY-US201104003797

PATIENT
  Sex: Female

DRUGS (5)
  1. SIMVASTATIN [Concomitant]
  2. FISH OIL [Concomitant]
  3. MULTI-VITAMIN [Concomitant]
  4. CALCIUM [Concomitant]
  5. FORTEO [Suspect]
     Indication: OSTEOPOROSIS
     Dosage: 20 UG, QD
     Route: 065
     Dates: start: 20101023

REACTIONS (2)
  - BREAST CALCIFICATIONS [None]
  - BREAST CANCER IN SITU [None]
